FAERS Safety Report 23196870 (Version 2)
Quarter: 2024Q1

REPORT INFORMATION
  Report Type: Spontaneous
  Country: JP (occurrence: JP)
  Receive Date: 20231117
  Receipt Date: 20240219
  Transmission Date: 20240410
  Serious: Yes (Hospitalization)
  Sender: FDA-Public Use
  Company Number: JP-PFIZER INC-PV202300183849

PATIENT
  Age: 72 Year
  Sex: Male
  Weight: 41.4 kg

DRUGS (3)
  1. LORBRENA [Suspect]
     Active Substance: LORLATINIB
     Indication: Non-small cell lung cancer
     Dosage: 100 MG, DAILY
     Dates: start: 20200515, end: 20200627
  2. LORBRENA [Suspect]
     Active Substance: LORLATINIB
     Dosage: 100 MG, DAILY
     Dates: start: 20200629, end: 20200801
  3. LORBRENA [Suspect]
     Active Substance: LORLATINIB
     Dosage: 100 MG, DAILY
     Dates: start: 20200904, end: 20210420

REACTIONS (4)
  - Pneumonia [Unknown]
  - Stress cardiomyopathy [Unknown]
  - Disease recurrence [Unknown]
  - Diarrhoea [Unknown]
